FAERS Safety Report 8555092 (Version 2)
Quarter: 2013Q3

REPORT INFORMATION
  Report Type: Spontaneous
  Country: GB (occurrence: None)
  Receive Date: 20120503
  Receipt Date: 20130705
  Transmission Date: 20140515
  Serious: Yes (Hospitalization)
  Sender: FDA-Public Use
  Company Number: GB-024096

PATIENT
  Age: 80 Year
  Sex: Male

DRUGS (4)
  1. CHLORAMBUCIL [Suspect]
     Indication: CHRONIC LYMPHOCYTIC LEUKAEMIA
     Route: 048
     Dates: start: 20110825
  2. RITUXIMAB [Suspect]
     Indication: CHRONIC LYMPHOCYTIC LEUKAEMIA
     Route: 042
     Dates: start: 20110825
  3. METOCLOPRAMIDE [Concomitant]
  4. ALLOPURINOL [Concomitant]

REACTIONS (4)
  - Infection [None]
  - Haemoglobin decreased [None]
  - Platelet count increased [None]
  - Lower urinary tract symptoms [None]
